FAERS Safety Report 8491331-7 (Version None)
Quarter: 2012Q3

REPORT INFORMATION
  Report Type: 
  Country: None (occurrence: None)
  Receive Date: 20120706
  Receipt Date: 20120704
  Transmission Date: 20120928
  Serious: Yes (Other)
  Sender: FDA-Public Use
  Company Number: PHHY2012AR057539

PATIENT
  Sex: Male

DRUGS (1)
  1. DIOVAN HCT [Suspect]
     Indication: BLOOD PRESSURE ABNORMAL
     Dosage: 1 DF(160 MG VALS AND 12.5 MG HCTZ), DAILY
     Dates: start: 20050101

REACTIONS (7)
  - NERVE COMPRESSION [None]
  - ABASIA [None]
  - MUSCLE SPASTICITY [None]
  - ARTHRALGIA [None]
  - OEDEMA PERIPHERAL [None]
  - SPINAL DISORDER [None]
  - DISLOCATION OF VERTEBRA [None]
